FAERS Safety Report 24855783 (Version 1)
Quarter: 2025Q1

REPORT INFORMATION
  Report Type: Spontaneous
  Country: SA (occurrence: SA)
  Receive Date: 20250117
  Receipt Date: 20250117
  Transmission Date: 20250409
  Serious: Yes (Death, Hospitalization, Other)
  Sender: RANBAXY
  Company Number: SA-SUN PHARMACEUTICAL INDUSTRIES LTD-2025R1-488964

PATIENT
  Age: 31 Year
  Sex: Male

DRUGS (3)
  1. AMPHOTERICIN B [Suspect]
     Active Substance: AMPHOTERICIN B
     Indication: Allergic fungal rhinosinusitis
     Route: 042
  2. VORICONAZOLE [Suspect]
     Active Substance: VORICONAZOLE
     Indication: Allergic fungal rhinosinusitis
     Route: 042
  3. DEXAMETHASONE [Suspect]
     Active Substance: DEXAMETHASONE
     Indication: Allergic fungal rhinosinusitis
     Route: 042

REACTIONS (1)
  - Condition aggravated [Fatal]
